FAERS Safety Report 21874076 (Version 1)
Quarter: 2023Q1

REPORT INFORMATION
  Report Type: Spontaneous
  Country: US (occurrence: None)
  Receive Date: 20230116
  Receipt Date: 20230116
  Transmission Date: 20230417
  Serious: No
  Sender: FDA-Public Use
  Company Number: None

PATIENT
  Age: 58 Year
  Sex: Male
  Weight: 135.17 kg

DRUGS (9)
  1. CAPECITABINE [Suspect]
     Active Substance: CAPECITABINE
     Indication: Oesophageal carcinoma
     Dosage: 250MG TWICE DAILY ORAL
     Route: 048
  2. ANLODPINE BESY-BENAZEPRIL [Concomitant]
  3. ELIQUIS [Concomitant]
     Active Substance: APIXABAN
  4. FLONASE [Concomitant]
     Active Substance: FLUTICASONE PROPIONATE
  5. MULTIVITAMIN [Concomitant]
  6. METOPROLOL [Concomitant]
     Active Substance: METOPROLOL
  7. PANTOPRAZOLE [Concomitant]
     Active Substance: PANTOPRAZOLE
  8. PRAVASTATIN [Concomitant]
     Active Substance: PRAVASTATIN
  9. SPIRONOLACTONE [Concomitant]
     Active Substance: SPIRONOLACTONE

REACTIONS (2)
  - Palmar-plantar erythrodysaesthesia syndrome [None]
  - Fatigue [None]
